FAERS Safety Report 21324799 (Version 1)
Quarter: 2022Q3

REPORT INFORMATION
  Report Type: Spontaneous
  Country: GB (occurrence: None)
  Receive Date: 20220912
  Receipt Date: 20220912
  Transmission Date: 20221027
  Serious: Yes (Other)
  Sender: FDA-Public Use
  Company Number: 2022A314052

PATIENT
  Age: 85 Year
  Sex: Female

DRUGS (16)
  1. QUETIAPINE [Suspect]
     Active Substance: QUETIAPINE
     Indication: Product used for unknown indication
     Dosage: 25.0MG UNKNOWN
     Route: 048
     Dates: start: 20220823
  2. QUETIAPINE [Suspect]
     Active Substance: QUETIAPINE
     Indication: Product used for unknown indication
     Dosage: 25.0MG UNKNOWN
     Route: 065
     Dates: start: 20220826, end: 20220829
  3. ATORVASTATIN [Concomitant]
     Active Substance: ATORVASTATIN
     Dosage: 4480 MILLIGRAMS CUMULATIVE DOSE
     Route: 065
     Dates: start: 20220701
  4. ANUSOL NOS [Concomitant]
     Active Substance: BALSAM PERU\BENZYL BENZOATE\BISMUTH HYDROXIDE\BISMUTH SUBGALLATE\HYDROCORTISONE ACETATE\ZINC OXIDE
     Dosage: APPLY TWICE DAILY AND AFTER MOTIONS
     Route: 065
     Dates: start: 20220624
  5. BISOPROLOL [Concomitant]
     Active Substance: BISOPROLOL
     Dosage: 140 MILLIGRAMS CUMULATIVE DOSE
     Route: 065
     Dates: start: 20220701
  6. CARBOMER [Concomitant]
     Active Substance: CARBOMER
     Dosage: USE IN BOTH EYES TWICE DAILY
     Route: 065
     Dates: start: 20220801, end: 20220826
  7. CETIRIZINE [Concomitant]
     Active Substance: CETIRIZINE HYDROCHLORIDE
     Dosage: 30 MILLIGRAMS
     Route: 065
     Dates: start: 20220829
  8. EDOXABAN [Concomitant]
     Active Substance: EDOXABAN
     Dosage: 3360 MILLIGRAMS, CUMULATIVE DOSE IN THE MORNING
     Route: 065
     Dates: start: 20220701
  9. NITROGLYCERIN [Concomitant]
     Active Substance: NITROGLYCERIN
     Indication: Chest pain
     Dosage: 400MICROGRAMS/DOSE PUMP800UG/INHAL
     Route: 065
     Dates: start: 20220801, end: 20220826
  10. IBUPROFEN [Concomitant]
     Active Substance: IBUPROFEN
     Dosage: APPLY TO LEFT KNEE
     Route: 065
     Dates: start: 20220801, end: 20220826
  11. POLYETHYLENE GLYCOL 3350\POTASSIUM CHLORIDE\SODIUM BICARBONATE\SODIUM [Concomitant]
     Active Substance: POLYETHYLENE GLYCOL 3350\POTASSIUM CHLORIDE\SODIUM BICARBONATE\SODIUM CHLORIDE
     Indication: Constipation
     Dosage: 1-3 SACHETS DAILY
     Route: 065
     Dates: start: 20220615
  12. MIRTAZAPINE [Concomitant]
     Active Substance: MIRTAZAPINE
     Dosage: 1680 MILLIGRAMS CUMULATIVE DOSE, AT NIGHT
     Route: 065
     Dates: start: 20220701
  13. OMEPRAZOLE [Concomitant]
     Active Substance: OMEPRAZOLE
     Dosage: 2240 MILLIGRAMS CUMULATIVE DOSE, ONE MANE AND ONE NOCTE
     Route: 065
     Dates: start: 20220701
  14. ACETAMINOPHEN [Concomitant]
     Active Substance: ACETAMINOPHEN
     Dosage: 112000 MILLIGRAMS CUMULATIVE DOSE
     Route: 065
     Dates: start: 20220701
  15. CALCIUM CARBONATE\SODIUM ALGINATE\SODIUM BICARBONATE [Concomitant]
     Active Substance: CALCIUM CARBONATE\SODIUM ALGINATE\SODIUM BICARBONATE
     Dosage: AFTER MEALS AND AT BEDTIME10.0ML UNKNOWN
     Route: 065
     Dates: start: 20220801, end: 20220826
  16. ROPINIROLE [Concomitant]
     Active Substance: ROPINIROLE
     Dosage: 112 MILLIGRAMS CUMULATIVE DOSE AT NIGHT
     Route: 065
     Dates: start: 20220701

REACTIONS (2)
  - Swelling of eyelid [Unknown]
  - Vision blurred [Unknown]

NARRATIVE: CASE EVENT DATE: 20220826
